FAERS Safety Report 25778001 (Version 1)
Quarter: 2025Q3

REPORT INFORMATION
  Report Type: Spontaneous
  Country: AU (occurrence: AU)
  Receive Date: 20250909
  Receipt Date: 20250909
  Transmission Date: 20251021
  Serious: Yes (Life-Threatening, Hospitalization)
  Sender: ACCORD
  Company Number: AU-MLMSERVICE-20250821-PI621184-00152-1

PATIENT
  Age: 42 Year
  Sex: Male

DRUGS (3)
  1. FLUOROURACIL [Suspect]
     Active Substance: FLUOROURACIL
     Indication: Rectal adenocarcinoma
  2. LEUCOVORIN [Concomitant]
     Active Substance: LEUCOVORIN\LEUCOVORIN CALCIUM
     Indication: Rectal adenocarcinoma
  3. OXALIPLATIN [Concomitant]
     Active Substance: OXALIPLATIN
     Indication: Rectal adenocarcinoma

REACTIONS (6)
  - Ventricular tachycardia [Recovered/Resolved]
  - Arrhythmic storm [Recovered/Resolved]
  - Multiple organ dysfunction syndrome [Recovered/Resolved]
  - Ventricular dysfunction [Recovered/Resolved]
  - Ejection fraction decreased [Recovered/Resolved]
  - Mitral valve incompetence [Recovered/Resolved]
